FAERS Safety Report 20547647 (Version 2)
Quarter: 2022Q1

REPORT INFORMATION
  Report Type: Spontaneous
  Country: US (occurrence: US)
  Receive Date: 20220303
  Receipt Date: 20220317
  Transmission Date: 20220424
  Serious: Yes (Other)
  Sender: FDA-Public Use
  Company Number: US-TEVA-2022-US-2011716

PATIENT
  Sex: Female

DRUGS (11)
  1. MORPHINE [Suspect]
     Active Substance: MORPHINE
     Indication: Pain management
     Dosage: EXTENDED-RELEASE
     Route: 048
  2. MORPHINE [Suspect]
     Active Substance: MORPHINE
     Dosage: MORPHINE EQUIVALENT DAILY DOSE; ON WEEKS 1 AND 2 AFTER THE FULVESTRANT DOSE
     Route: 048
  3. MORPHINE [Suspect]
     Active Substance: MORPHINE
     Dosage: ON WEEKS 3 AND 4 AFTER THE FULVESTRANT DOSE
     Route: 048
  4. OXYCODONE [Interacting]
     Active Substance: OXYCODONE
     Indication: Pain management
     Dosage: 54 MILLIGRAM DAILY; EXTENDED-RELEASE
     Route: 048
  5. FENTANYL [Suspect]
     Active Substance: FENTANYL
     Indication: Pain management
     Route: 062
  6. XTAMPZA [Suspect]
     Active Substance: OXYCODONE
     Indication: Pain management
     Dosage: 54 MILLIGRAM DAILY; EXTENDED-RELEASE
     Route: 048
  7. ACETAMINOPHEN\HYDROCODONE [Concomitant]
     Active Substance: ACETAMINOPHEN\HYDROCODONE
     Indication: Pain management
     Dosage: 6 DOSES A DAY ON WEEKS 1-2 AND 4 DOSES A DAY ON WEEKS 3-4
     Route: 048
  8. FULVESTRANT [Concomitant]
     Active Substance: FULVESTRANT
     Indication: Breast cancer metastatic
     Route: 065
  9. PALBOCICLIB [Concomitant]
     Active Substance: PALBOCICLIB
     Indication: Breast cancer metastatic
     Route: 065
  10. DENOSUMAB [Concomitant]
     Active Substance: DENOSUMAB
     Indication: Bone pain
     Route: 058
  11. LORATADINE [Concomitant]
     Active Substance: LORATADINE
     Indication: Pain
     Route: 065

REACTIONS (3)
  - Drug ineffective [Unknown]
  - Drug level decreased [Recovered/Resolved]
  - Food interaction [Unknown]
